FAERS Safety Report 4635364-7 (Version None)
Quarter: 2005Q2

REPORT INFORMATION
  Report Type: 
  Country: None (occurrence: None)
  Receive Date: 20050411
  Receipt Date: 20020701
  Transmission Date: 20051028
  Serious: Yes (Hospitalization)
  Sender: FDA-Public Use
  Company Number: 3875

PATIENT
  Age: 10 Year
  Sex: Male

DRUGS (6)
  1. CYTARABINE [Suspect]
     Indication: ACUTE LEUKAEMIA
     Dosage: 85 MG, SC
     Route: 058
     Dates: start: 20011025, end: 20011028
  2. VINCRISTINE SULFATE [Suspect]
     Indication: ACUTE LEUKAEMIA
     Dosage: 1.7 MG, IV
     Route: 042
     Dates: start: 20011025, end: 20011025
  3. METHOTREXATE [Suspect]
     Indication: ACUTE LEUKAEMIA
     Dosage: 12 MG; IT
     Route: 038
     Dates: start: 20011025, end: 20011025
  4. MIDAZOLAM HCL [Concomitant]
  5. FENTANYL [Concomitant]
  6. TROPISETRON HYDROCHLORIDE [Concomitant]

REACTIONS (1)
  - NEUROPATHY [None]
